FAERS Safety Report 7190253-1 (Version None)
Quarter: 2010Q4

REPORT INFORMATION
  Report Type: 
  Country: None (occurrence: None)
  Receive Date: 20101223
  Receipt Date: 20101216
  Transmission Date: 20110411
  Serious: Yes (Other)
  Sender: FDA-Public Use
  Company Number: PHHO2010PL19224

PATIENT
  Sex: Female
  Weight: 70 kg

DRUGS (7)
  1. FTY 720 FTY+CAP+MSC [Suspect]
     Indication: MULTIPLE SCLEROSIS
     Dosage: DOSE BLINDED
     Route: 048
     Dates: start: 20081216, end: 20100318
  2. FTY 720 FTY+CAP+MSC [Suspect]
     Dosage: 0.5 MG, QD
     Route: 048
     Dates: start: 20100319, end: 20101215
  3. CONCOR COR [Concomitant]
     Indication: HYPERTENSION
     Dosage: UNK
     Dates: start: 20080629
  4. CLINDAMYCIN [Concomitant]
     Indication: PERIODONTITIS
     Dosage: UNK
     Dates: start: 20090314, end: 20090315
  5. OXYBUTYNIN [Concomitant]
     Indication: BLADDER DYSFUNCTION
     Dosage: UNK
     Dates: start: 20091214, end: 20100915
  6. TIZANIDINE HCL [Concomitant]
     Indication: MUSCLE SPASMS
     Dosage: UNK
     Dates: start: 20100903, end: 20101002
  7. STILNOX [Concomitant]
     Indication: SLEEP DISORDER
     Dosage: UNK
     Dates: start: 20101213

REACTIONS (1)
  - BASAL CELL CARCINOMA [None]
